FAERS Safety Report 9523709 (Version 3)
Quarter: 2013Q3

REPORT INFORMATION
  Report Type: Spontaneous
  Country: US (occurrence: US)
  Receive Date: 20130913
  Receipt Date: 20130925
  Transmission Date: 20140515
  Serious: Yes (Disabling)
  Sender: FDA-Public Use
  Company Number: US-ROCHE-1260987

PATIENT
  Age: 76 Year
  Sex: Female
  Weight: 56.8 kg

DRUGS (6)
  1. PERJETA [Suspect]
     Indication: BREAST CANCER METASTATIC
     Dosage: LOADING DOSE
     Route: 042
     Dates: start: 20130723
  2. PERJETA [Suspect]
     Route: 042
     Dates: start: 20130813
  3. HERCEPTIN [Suspect]
     Indication: BREAST CANCER METASTATIC
     Route: 042
     Dates: start: 20130723
  4. DOCETAXEL [Suspect]
     Indication: BREAST CANCER
     Route: 065
  5. OXYCONTIN [Concomitant]
     Route: 048
  6. ARMOUR THYROID [Concomitant]

REACTIONS (6)
  - Fatigue [Not Recovered/Not Resolved]
  - Myalgia [Unknown]
  - Asthenia [Not Recovered/Not Resolved]
  - Hypoaesthesia [Not Recovered/Not Resolved]
  - Paraesthesia [Not Recovered/Not Resolved]
  - Dysgeusia [Unknown]
